FAERS Safety Report 13372813 (Version 1)
Quarter: 2017Q1

REPORT INFORMATION
  Report Type: Spontaneous
  Country: US (occurrence: US)
  Receive Date: 20170326
  Receipt Date: 20170326
  Transmission Date: 20170429
  Serious: No
  Sender: FDA-Public Use
  Company Number: None

PATIENT
  Age: 65 Year
  Sex: Female
  Weight: 72.9 kg

DRUGS (6)
  1. PROLIA [Suspect]
     Active Substance: DENOSUMAB
     Indication: OSTEOPOROSIS
     Dosage: OTHER FREQUENCY:6 MONTHS;?
     Route: 058
     Dates: start: 20150203, end: 20170315
  2. VITAMIN B12 [Concomitant]
     Active Substance: CYANOCOBALAMIN
  3. CALCIUM [Concomitant]
     Active Substance: CALCIUM
  4. LEVOTHYROXIN [Concomitant]
     Active Substance: LEVOTHYROXINE
  5. D-3 [Concomitant]
     Active Substance: CHOLECALCIFEROL
  6. BIOTIN [Concomitant]
     Active Substance: BIOTIN

REACTIONS (7)
  - Muscle disorder [None]
  - Weight bearing difficulty [None]
  - Mobility decreased [None]
  - Musculoskeletal discomfort [None]
  - Pain in extremity [None]
  - Arthralgia [None]
  - Groin pain [None]

NARRATIVE: CASE EVENT DATE: 20170316
